FAERS Safety Report 7691111-6 (Version None)
Quarter: 2011Q3

REPORT INFORMATION
  Report Type: 
  Country: None (occurrence: None)
  Receive Date: 20110818
  Receipt Date: 20110808
  Transmission Date: 20111222
  Serious: Yes (Other)
  Sender: FDA-Public Use
  Company Number: US-ROCHE-797018

PATIENT
  Sex: Female

DRUGS (4)
  1. AVASTIN [Suspect]
     Route: 065
  2. CARBOPLATIN [Concomitant]
  3. ALIMTA [Concomitant]
  4. GEMZAR [Concomitant]

REACTIONS (1)
  - LUNG LOBECTOMY [None]
